FAERS Safety Report 9904903 (Version 4)
Quarter: 2014Q3

REPORT INFORMATION
  Report Type: Spontaneous
  Country: US (occurrence: US)
  Receive Date: 20140218
  Receipt Date: 20140711
  Transmission Date: 20150326
  Serious: Yes (Hospitalization, Disabling, Other)
  Sender: FDA-Public Use
  Company Number: US-BAYER-2014-025157

PATIENT
  Age: 32 Year
  Sex: Female
  Weight: 65.76 kg

DRUGS (2)
  1. MIRENA [Suspect]
     Active Substance: LEVONORGESTREL
     Indication: CONTRACEPTION
     Dosage: 20 MCG/24HR, CONT
     Route: 015
     Dates: start: 200904, end: 20120323
  2. PONSTEL [Concomitant]
     Active Substance: MEFENAMIC ACID
     Indication: ABDOMINAL PAIN LOWER
     Dosage: 250 MG, EVERY 4-6 HOURS
     Route: 048

REACTIONS (14)
  - Ectopic pregnancy with contraceptive device [None]
  - Pelvic pain [None]
  - Dysfunctional uterine bleeding [None]
  - Device physical property issue [None]
  - Anxiety [None]
  - Deformity [None]
  - Anhedonia [None]
  - Injury [None]
  - General physical health deterioration [None]
  - Emotional distress [None]
  - Embedded device [None]
  - Device issue [None]
  - Drug ineffective [None]
  - Pain [None]

NARRATIVE: CASE EVENT DATE: 201203
